FAERS Safety Report 19289010 (Version 1)
Quarter: 2021Q2

REPORT INFORMATION
  Report Type: Spontaneous
  Country: RO (occurrence: RO)
  Receive Date: 20210521
  Receipt Date: 20210521
  Transmission Date: 20210717
  Serious: Yes (Other)
  Sender: FDA-Public Use
  Company Number: NVSC2021RO061198

PATIENT
  Age: 68 Year
  Sex: Female
  Weight: 72 kg

DRUGS (6)
  1. COSENTYX [Suspect]
     Active Substance: SECUKINUMAB
     Indication: PSORIASIS
     Dosage: 300 MG, QW
     Route: 030
  2. COSENTYX [Suspect]
     Active Substance: SECUKINUMAB
     Dosage: 300 MG, QW
     Route: 003
     Dates: start: 20210301
  3. NORVASC [Concomitant]
     Active Substance: AMLODIPINE BESYLATE
     Indication: HYPERTENSION
     Dosage: 1 DF, QD
     Route: 048
  4. PENTOXI [Concomitant]
     Indication: PERIPHERAL VENOUS DISEASE
     Dosage: 1 DF, QD
     Route: 048
  5. SIOFOR [Concomitant]
     Active Substance: METFORMIN HYDROCHLORIDE
     Indication: DIABETES MELLITUS
     Dosage: 1 DF, QD
     Route: 048
  6. FORXIGA [Concomitant]
     Active Substance: DAPAGLIFLOZIN
     Indication: DIABETES MELLITUS
     Dosage: 1 DF, QD
     Route: 048

REACTIONS (17)
  - Erythema [Unknown]
  - Oropharyngeal discomfort [Unknown]
  - Chest discomfort [Unknown]
  - Choking [Unknown]
  - Pruritus [Unknown]
  - Incorrect route of product administration [Unknown]
  - Laryngeal disorder [Unknown]
  - Upper airway obstruction [Unknown]
  - Tinnitus [Recovered/Resolved]
  - Oedema [Unknown]
  - Tinnitus [Unknown]
  - Suffocation feeling [Unknown]
  - Urticaria [Unknown]
  - Swelling [Unknown]
  - Dyspnoea [Unknown]
  - Flushing [Unknown]
  - Rash [Unknown]

NARRATIVE: CASE EVENT DATE: 20210105
